FAERS Safety Report 5257157-2 (Version None)
Quarter: 2007Q1

REPORT INFORMATION
  Report Type: 
  Country: None (occurrence: None)
  Receive Date: 20070307
  Receipt Date: 20070228
  Transmission Date: 20070707
  Serious: Yes (Other)
  Sender: FDA-Public Use
  Company Number: US-AVENTIS-200710540US

PATIENT
  Sex: Female

DRUGS (8)
  1. TAXOTERE [Suspect]
     Indication: BREAST CANCER
     Dosage: DOSE: 6 CYCLES
     Dates: start: 20060914, end: 20061228
  2. CYTOXAN [Suspect]
     Indication: BREAST CANCER
     Dosage: DOSE: 6 CYCLES
     Dates: start: 20060914, end: 20061228
  3. ADRIAMYCIN                         /00330901/ [Suspect]
     Indication: BREAST CANCER
     Dosage: DOSE: 6 CYC
     Dates: start: 20060914, end: 20061228
  4. VITAMINS [Concomitant]
     Dosage: DOSE: UNK
  5. ASMANEX TWISTHALER [Concomitant]
     Dosage: DOSE: UNK
  6. ASTELIN                            /00884002/ [Concomitant]
     Dosage: DOSE: UNK
  7. ALAVERT [Concomitant]
     Dosage: DOSE: UNK
  8. IMODIUM [Concomitant]
     Dosage: DOSE: UNK

REACTIONS (8)
  - NEUROPATHY PERIPHERAL [None]
  - NEUTROPENIA [None]
  - OPTIC ISCHAEMIC NEUROPATHY [None]
  - PAPILLOEDEMA [None]
  - PHOTOPSIA [None]
  - PUPILLARY REFLEX IMPAIRED [None]
  - VISUAL ACUITY REDUCED [None]
  - VISUAL FIELD DEFECT [None]
